FAERS Safety Report 7673735-5 (Version None)
Quarter: 2011Q3

REPORT INFORMATION
  Report Type: 
  Country: None (occurrence: None)
  Receive Date: 20110810
  Receipt Date: 20110526
  Transmission Date: 20111222
  Serious: No
  Sender: FDA-Public Use
  Company Number: DE-UCBSA-023882

PATIENT
  Age: 17 Year
  Sex: Female

DRUGS (1)
  1. CIMZIA [Suspect]
     Indication: JUVENILE ARTHRITIS
     Dosage: SINGLE DOSE
     Route: 058
     Dates: start: 20101101, end: 20101101

REACTIONS (1)
  - PAIN OF SKIN [None]
